FAERS Safety Report 25143770 (Version 2)
Quarter: 2025Q2

REPORT INFORMATION
  Report Type: Report from Study
  Country: PK (occurrence: PK)
  Receive Date: 20250401
  Receipt Date: 20250410
  Transmission Date: 20250717
  Serious: Yes (Hospitalization, Other)
  Sender: ROCHE
  Company Number: PK-ROCHE-10000241886

PATIENT
  Age: 28 Year
  Sex: Female

DRUGS (1)
  1. RITUXIMAB [Suspect]
     Active Substance: RITUXIMAB
     Indication: Rheumatoid arthritis
     Dosage: 1000 MG Q15 DAYS FOR 2 CYCLE
     Route: 042
     Dates: start: 20250226, end: 20250324

REACTIONS (5)
  - Infusion related reaction [Recovered/Resolved]
  - Blood pressure increased [Recovered/Resolved]
  - Rash [Recovered/Resolved]
  - Musculoskeletal stiffness [Recovered/Resolved]
  - Infection [Unknown]

NARRATIVE: CASE EVENT DATE: 20250324
